FAERS Safety Report 11629273 (Version 1)
Quarter: 2015Q4

REPORT INFORMATION
  Report Type: Spontaneous
  Country: US (occurrence: None)
  Receive Date: 20151013
  Receipt Date: 20151013
  Transmission Date: 20160304
  Serious: Yes (Hospitalization, Disabling)
  Sender: FDA-Public Use
  Company Number: None

PATIENT
  Age: 42 Year
  Sex: Male
  Weight: 74.84 kg

DRUGS (4)
  1. PHENYTOIN. [Suspect]
     Active Substance: PHENYTOIN
     Indication: CONVULSION PROPHYLAXIS
     Dosage: TAKEN BY MOUTH
     Route: 048
     Dates: start: 20150801, end: 20151004
  2. PRILOSEC [Concomitant]
     Active Substance: OMEPRAZOLE MAGNESIUM
  3. FLONASE [Concomitant]
     Active Substance: FLUTICASONE PROPIONATE
  4. MULTIPLE VITAMIN [Concomitant]
     Active Substance: VITAMINS

REACTIONS (4)
  - Product quality issue [None]
  - Seizure [None]
  - Product taste abnormal [None]
  - Anticoagulation drug level decreased [None]

NARRATIVE: CASE EVENT DATE: 20151004
